FAERS Safety Report 8099472-3 (Version None)
Quarter: 2012Q1

REPORT INFORMATION
  Report Type: 
  Country: None (occurrence: None)
  Receive Date: 20120129
  Receipt Date: 20111007
  Transmission Date: 20120608
  Serious: No
  Sender: FDA-Public Use
  Company Number: US-ABBOTT-11P-163-0861859-00

PATIENT
  Sex: Female

DRUGS (6)
  1. DONNATAL [Concomitant]
     Indication: GASTROOESOPHAGEAL REFLUX DISEASE
  2. VITAMIN D [Concomitant]
     Indication: SUPPLEMENTATION THERAPY
  3. HUMIRA [Suspect]
     Indication: PSORIATIC ARTHROPATHY
     Route: 058
     Dates: start: 20110901
  4. OMEPRAZOLE [Concomitant]
     Indication: GASTROOESOPHAGEAL REFLUX DISEASE
     Dosage: ONCE DAILY, IN THE MORNING
     Dates: start: 20090101
  5. METHOTREXATE [Concomitant]
     Indication: PSORIATIC ARTHROPATHY
     Dosage: ONCE WEEKLY, ON TUESDAYS ONLY
  6. FOLIC ACID [Concomitant]
     Indication: PSORIATIC ARTHROPATHY

REACTIONS (8)
  - GASTROOESOPHAGEAL REFLUX DISEASE [None]
  - DEVICE MALFUNCTION [None]
  - MEMORY IMPAIRMENT [None]
  - ANXIETY [None]
  - WRONG TECHNIQUE IN DRUG USAGE PROCESS [None]
  - PSYCHOMOTOR HYPERACTIVITY [None]
  - INCORRECT DOSE ADMINISTERED [None]
  - SLEEP DISORDER [None]
